FAERS Safety Report 13492242 (Version 1)
Quarter: 2017Q2

REPORT INFORMATION
  Report Type: Spontaneous
  Country: US (occurrence: US)
  Receive Date: 20170427
  Receipt Date: 20170427
  Transmission Date: 20170830
  Serious: No
  Sender: FDA-Public Use
  Company Number: US-PFIZER INC-2017176942

PATIENT
  Age: 16 Year
  Sex: Male
  Weight: 68.4 kg

DRUGS (4)
  1. GENOTROPIN MQ [Suspect]
     Active Substance: SOMATROPIN
     Indication: HYPOTHALAMO-PITUITARY DISORDER
     Dosage: 0.8 MG, DAILY
  2. DESMOPRESSIN [Concomitant]
     Active Substance: DESMOPRESSIN
     Indication: DIURETIC THERAPY
     Dosage: UNKNOWN
  3. LEVOXIN [Concomitant]
     Active Substance: LEVOFLOXACIN
     Indication: THYROID DISORDER
     Dosage: UNKNOWN
  4. SYNTHROID [Concomitant]
     Active Substance: LEVOTHYROXINE SODIUM
     Indication: EPINEPHRINE ABNORMAL
     Dosage: UNKNOWN

REACTIONS (4)
  - Drug dose omission [Unknown]
  - Intentional product misuse [Unknown]
  - Malaise [Unknown]
  - Influenza [Recovered/Resolved]

NARRATIVE: CASE EVENT DATE: 2016
